FAERS Safety Report 6136298-1 (Version None)
Quarter: 2009Q1

REPORT INFORMATION
  Report Type: 
  Country: None (occurrence: None)
  Receive Date: 20090330
  Receipt Date: 20090326
  Transmission Date: 20090719
  Serious: Yes (Other)
  Sender: FDA-Public Use
  Company Number: US-BRISTOL-MYERS SQUIBB COMPANY-14562698

PATIENT
  Age: 38 Year
  Sex: Female

DRUGS (4)
  1. ABILIFY [Suspect]
     Dosage: ABILIFY 2 MG SAMPLES AND GIVEN A 5MG PRESCRIPTION.
  2. EFFEXOR [Concomitant]
  3. VYVANSE [Concomitant]
  4. LAMICTAL [Concomitant]

REACTIONS (4)
  - BODY TEMPERATURE INCREASED [None]
  - CONFUSIONAL STATE [None]
  - EPISTAXIS [None]
  - MUSCLE SPASMS [None]
